FAERS Safety Report 4981579-8 (Version None)
Quarter: 2006Q2

REPORT INFORMATION
  Report Type: 
  Country: None (occurrence: None)
  Receive Date: 20060420
  Receipt Date: 20060420
  Transmission Date: 20061013
  Serious: No
  Sender: FDA-Public Use
  Company Number: None

PATIENT
  Age: 46 Year
  Sex: Female
  Weight: 86.1834 kg

DRUGS (1)
  1. LIPITOR [Suspect]
     Indication: BLOOD CHOLESTEROL INCREASED
     Dosage: ONE TABLET  ONCE A DAY  PO
     Route: 048
     Dates: start: 20060204, end: 20060413

REACTIONS (4)
  - ARTHRALGIA [None]
  - DISTURBANCE IN ATTENTION [None]
  - FATIGUE [None]
  - MYALGIA [None]
